FAERS Safety Report 16396260 (Version 1)
Quarter: 2019Q2

REPORT INFORMATION
  Report Type: Spontaneous
  Country: SI (occurrence: SI)
  Receive Date: 20190605
  Receipt Date: 20190605
  Transmission Date: 20190711
  Serious: Yes (Other)
  Sender: FDA-Public Use
  Company Number: SI-BAUSCH-BL-2019-016137

PATIENT
  Age: 59 Year
  Sex: Male
  Weight: 81 kg

DRUGS (4)
  1. ISOPHANE INSULIN [Suspect]
     Active Substance: INSULIN NOS
     Indication: TYPE 2 DIABETES MELLITUS
     Dosage: BEFORE SLEEPING
     Route: 065
  2. METFORMIN [Suspect]
     Active Substance: METFORMIN HYDROCHLORIDE
     Indication: TYPE 2 DIABETES MELLITUS
     Route: 048
  3. ISOPHANE INSULIN [Suspect]
     Active Substance: INSULIN NOS
     Route: 065
  4. GLICLAZIDE [Suspect]
     Active Substance: GLICLAZIDE
     Indication: TYPE 2 DIABETES MELLITUS
     Route: 048

REACTIONS (3)
  - Hyperglycaemia [Unknown]
  - Glycosylated haemoglobin increased [Not Recovered/Not Resolved]
  - Drug ineffective [Unknown]
